FAERS Safety Report 8367244-8 (Version None)
Quarter: 2012Q2

REPORT INFORMATION
  Report Type: 
  Country: None (occurrence: None)
  Receive Date: 20120517
  Receipt Date: 20120514
  Transmission Date: 20120825
  Serious: Yes (Other)
  Sender: FDA-Public Use
  Company Number: US-PFIZER INC-2012117045

PATIENT
  Age: 55 Year
  Sex: Male

DRUGS (3)
  1. LYRICA [Suspect]
     Dosage: UNK
  2. CYMBALTA [Suspect]
     Dosage: UNK
  3. ANDROGEL [Suspect]
     Dosage: 1 %, UNK

REACTIONS (7)
  - FRUSTRATION [None]
  - HAIR GROWTH ABNORMAL [None]
  - WEIGHT INCREASED [None]
  - DYSPHONIA [None]
  - ANGER [None]
  - ABNORMAL BEHAVIOUR [None]
  - CRYING [None]
